FAERS Safety Report 9163359 (Version 2)
Quarter: 2013Q2

REPORT INFORMATION
  Report Type: Spontaneous
  Country: US (occurrence: US)
  Receive Date: 20130314
  Receipt Date: 20130513
  Transmission Date: 20140414
  Serious: Yes (Death, Hospitalization)
  Sender: FDA-Public Use
  Company Number: US-JNJFOC-20130306796

PATIENT
  Sex: Female
  Weight: 75 kg

DRUGS (1)
  1. XARELTO [Suspect]
     Indication: DEEP VEIN THROMBOSIS
     Route: 048

REACTIONS (6)
  - Death [Fatal]
  - Deep vein thrombosis [Unknown]
  - Hip fracture [Unknown]
  - Fall [Unknown]
  - Pulmonary embolism [Unknown]
  - Therapy cessation [Unknown]
